FAERS Safety Report 7207277-8 (Version None)
Quarter: 2011Q1

REPORT INFORMATION
  Report Type: 
  Country: None (occurrence: None)
  Receive Date: 20110103
  Receipt Date: 20101228
  Transmission Date: 20110831
  Serious: Yes (Hospitalization)
  Sender: FDA-Public Use
  Company Number: JP-ROCHE-750828

PATIENT
  Age: 77 Year
  Sex: Female

DRUGS (3)
  1. CAPECITABINE [Suspect]
     Indication: LARGE INTESTINE CARCINOMA
     Dosage: DOSAGE UNCERTAIN
     Route: 048
  2. ELPLAT [Concomitant]
     Dosage: DOSAGE IS UNCERTAIN
     Route: 041
  3. BEVACIZUMAB [Suspect]
     Indication: LARGE INTESTINE CARCINOMA
     Route: 041
     Dates: start: 20101222, end: 20101222

REACTIONS (2)
  - CEREBRAL HAEMORRHAGE [None]
  - LOSS OF CONSCIOUSNESS [None]
